FAERS Safety Report 4790052-1 (Version None)
Quarter: 2005Q4

REPORT INFORMATION
  Report Type: 
  Country: None (occurrence: None)
  Receive Date: 20051005
  Receipt Date: 20051005
  Transmission Date: 20060501
  Serious: Yes (Other)
  Sender: FDA-Public Use
  Company Number: None

PATIENT
  Sex: Female

DRUGS (1)
  1. PORTIA-21 [Suspect]
     Indication: ORAL CONTRACEPTION
     Dosage: ONE TABLET DAILY PO
     Route: 048
     Dates: start: 20050806, end: 20051004

REACTIONS (1)
  - HEADACHE [None]
